FAERS Safety Report 20095798 (Version 1)
Quarter: 2021Q4

REPORT INFORMATION
  Report Type: Report from Study
  Country: BR (occurrence: BR)
  Receive Date: 20211122
  Receipt Date: 20211122
  Transmission Date: 20220304
  Serious: Yes (Other)
  Sender: FDA-Public Use
  Company Number: BR-NOVARTISPH-NVSC2021BR263815

PATIENT
  Age: 30 Year
  Sex: Female

DRUGS (4)
  1. FULVESTRANT [Suspect]
     Active Substance: FULVESTRANT
     Indication: Breast cancer
     Dosage: 500 MG(500 MG AS ATTACK DOSE ON D1, D15, AND D28 , FOLLOWED BY EVERY 28 DAYS
     Route: 065
     Dates: start: 20200811
  2. RIBOCICLIB [Suspect]
     Active Substance: RIBOCICLIB
     Indication: Breast cancer
     Dosage: 200 MG(3 TABLET FROM D 1 TO D21 DAYS, EVERY 28 DAYS
     Route: 065
     Dates: start: 20200811
  3. GOSERELIN [Suspect]
     Active Substance: GOSERELIN
     Indication: Product used for unknown indication
     Dosage: 3.6 MG
     Route: 058
     Dates: start: 20200811
  4. DENOSUMAB [Concomitant]
     Active Substance: DENOSUMAB
     Indication: Prophylaxis
     Dosage: 120 MG, QMO
     Route: 058
     Dates: start: 20200811

REACTIONS (6)
  - Neutropenia [Unknown]
  - Melanocytic naevus [Unknown]
  - Mood swings [Unknown]
  - Chest pain [Unknown]
  - Chronic gastritis [Unknown]
  - Fatigue [Unknown]
